FAERS Safety Report 7410707-X (Version None)
Quarter: 2011Q2

REPORT INFORMATION
  Report Type: 
  Country: None (occurrence: None)
  Receive Date: 20110405
  Receipt Date: 20110328
  Transmission Date: 20111010
  Serious: Yes (Other)
  Sender: FDA-Public Use
  Company Number: 1000019722

PATIENT
  Age: 69 Year
  Sex: Male

DRUGS (6)
  1. ATACAND [Suspect]
     Indication: HYPERTENSION
     Dosage: ORAL
     Route: 048
  2. NEBIVOLOL HCL [Suspect]
     Indication: HYPERTENSION
     Dosage: 5 MG (5 MG, 1 IN 1 D), ORAL
     Route: 048
     Dates: start: 20070101
  3. PREVISCAN (FLUINDIONE) [Suspect]
     Dosage: 20 MG (20 MG, 1 IN 1 D), ORAL
     Route: 048
     Dates: start: 20060101
  4. INSPRA [Suspect]
     Dosage: 50 MG (50 MG, 1 IN 1 D), ORAL
     Route: 048
     Dates: start: 20090101
  5. DIGOXIN [Suspect]
     Dosage: ORAL
     Route: 048
     Dates: start: 20060101
  6. PANDERMIX (INFLUENZA VACCINE) [Suspect]
     Indication: ANTIVIRAL PROPHYLAXIS
     Dosage: (ONCE), INTRAMUSCULAR
     Route: 030
     Dates: start: 20091201, end: 20091201

REACTIONS (2)
  - TESTICULAR SEMINOMA (PURE) [None]
  - TESTICULAR HYPERTROPHY [None]
